FAERS Safety Report 4435450-0 (Version None)
Quarter: 2004Q3

REPORT INFORMATION
  Report Type: 
  Country: None (occurrence: None)
  Receive Date: 20040826
  Receipt Date: 20031118
  Transmission Date: 20050211
  Serious: Yes (Hospitalization)
  Sender: FDA-Public Use
  Company Number: GB-JNJFOC-20040604832

PATIENT
  Age: 18 Year
  Sex: Male

DRUGS (4)
  1. ACETAMINOPHEN [Suspect]
     Indication: SUICIDE ATTEMPT
     Dates: start: 20030120, end: 20030120
  2. ACETAMINOPHEN [Suspect]
     Indication: SUICIDE ATTEMPT
     Dates: start: 20030311, end: 20030311
  3. ETHANOL (EHTANOL) [Suspect]
     Indication: SUICIDE ATTEMPT
     Dates: start: 20030311, end: 20030311
  4. PAROXETINE HCL [Concomitant]

REACTIONS (8)
  - AKATHISIA [None]
  - ALCOHOL POISONING [None]
  - COMPLETED SUICIDE [None]
  - EMOTIONAL DISORDER [None]
  - GENERAL PHYSICAL HEALTH DETERIORATION [None]
  - INJURY ASPHYXIATION [None]
  - INTENTIONAL OVERDOSE [None]
  - PSYCHOTIC DISORDER [None]
